FAERS Safety Report 12961287 (Version 1)
Quarter: 2016Q4

REPORT INFORMATION
  Report Type: Spontaneous
  Country: US (occurrence: US)
  Receive Date: 20161121
  Receipt Date: 20161121
  Transmission Date: 20170207
  Serious: No
  Sender: FDA-Public Use
  Company Number: US-PFIZER INC-2016538730

PATIENT
  Sex: Male

DRUGS (3)
  1. ADVIL [Suspect]
     Active Substance: IBUPROFEN
     Indication: PYREXIA
     Dosage: TWICE A DAY, FOR AT LEAST 10-14 DAYS
     Dates: start: 2016, end: 2016
  2. ADVIL [Suspect]
     Active Substance: IBUPROFEN
     Indication: PAIN
  3. ADVIL [Suspect]
     Active Substance: IBUPROFEN
     Indication: MIGRAINE

REACTIONS (2)
  - Feeling abnormal [Unknown]
  - Headache [Recovering/Resolving]

NARRATIVE: CASE EVENT DATE: 2016
